FAERS Safety Report 17211507 (Version 2)
Quarter: 2020Q1

REPORT INFORMATION
  Report Type: Other
  Country: IT (occurrence: IT)
  Receive Date: 20191229
  Receipt Date: 20200207
  Transmission Date: 20200409
  Serious: Yes (Other)
  Sender: FDA-Public Use
  Company Number: IT-DENTSPLY-2019SCDP000701

PATIENT
  Age: 50 Year
  Sex: Female

DRUGS (2)
  1. MEPIVACAINE HCL [Suspect]
     Active Substance: MEPIVACAINE HYDROCHLORIDE
     Indication: PRODUCT USED FOR UNKNOWN INDICATION
     Dosage: 1 MILLILITER, TOTAL
     Route: 023
     Dates: start: 20191120, end: 20191120
  2. DEPO-MEDROL [Concomitant]
     Active Substance: METHYLPREDNISOLONE ACETATE
     Indication: PRODUCT USED FOR UNKNOWN INDICATION
     Dosage: UNK
     Dates: start: 20191120, end: 20191120

REACTIONS (3)
  - Lip swelling [Recovered/Resolved]
  - Hypersensitivity [Recovered/Resolved]
  - Paraesthesia [Recovered/Resolved]

NARRATIVE: CASE EVENT DATE: 20191120
